FAERS Safety Report 20389807 (Version 1)
Quarter: 2022Q1

REPORT INFORMATION
  Report Type: Spontaneous
  Country: US (occurrence: None)
  Receive Date: 20220128
  Receipt Date: 20220128
  Transmission Date: 20220423
  Serious: No
  Sender: FDA-Public Use
  Company Number: US-Ultragenyx Pharmaceutical Inc.-US-UGNX-21-00369

PATIENT
  Sex: Male

DRUGS (2)
  1. DOJOLVI [Suspect]
     Active Substance: TRIHEPTANOIN
     Indication: Very long-chain acyl-coenzyme A dehydrogenase deficiency
     Route: 048
     Dates: start: 20210618
  2. DOJOLVI [Suspect]
     Active Substance: TRIHEPTANOIN

REACTIONS (5)
  - Muscle spasms [Unknown]
  - Abdominal pain upper [Unknown]
  - Vomiting [Unknown]
  - Diarrhoea [Unknown]
  - Product dose omission in error [Unknown]
